FAERS Safety Report 9469594 (Version 1)
Quarter: 2013Q3

REPORT INFORMATION
  Report Type: Spontaneous
  Country: FR (occurrence: FR)
  Receive Date: 20130822
  Receipt Date: 20130822
  Transmission Date: 20140515
  Serious: Yes (Hospitalization)
  Sender: FDA-Public Use
  Company Number: FR-BRISTOL-MYERS SQUIBB COMPANY-19186808

PATIENT
  Age: 89 Year
  Sex: Female

DRUGS (9)
  1. COUMADIN TABS [Suspect]
     Route: 048
     Dates: start: 201301, end: 20130313
  2. MEDIATENSYL [Concomitant]
     Dosage: ONE TABLET MORNING AND EVENING
  3. AMLOR [Concomitant]
     Dosage: MORNING
  4. PREVISCAN [Concomitant]
  5. LASILIX [Concomitant]
  6. DIFFU-K [Concomitant]
     Dosage: ONE CAPSULE
  7. SIMVASTATINE [Concomitant]
     Dosage: ONE TABLET IN MORNING
  8. ALLOPURINOL [Concomitant]
     Dosage: ONE TABLET IN THE EVENING
  9. INEXIUM [Concomitant]
     Dosage: ONE TABLET IN THE EVENING.

REACTIONS (2)
  - Haematoma [Recovered/Resolved]
  - Staphylococcal infection [Recovered/Resolved]
